FAERS Safety Report 23774148 (Version 2)
Quarter: 2025Q2

REPORT INFORMATION
  Report Type: Report from Study
  Country: US (occurrence: US)
  Receive Date: 20240423
  Receipt Date: 20250604
  Transmission Date: 20250717
  Serious: Yes (Other)
  Sender: ABBVIE
  Company Number: US-ABBVIE-5729256

PATIENT
  Age: 60 Year
  Sex: Female

DRUGS (2)
  1. RINVOQ [Suspect]
     Active Substance: UPADACITINIB
     Indication: Rheumatoid arthritis
     Dosage: STRENGTH 15 MG
     Route: 048
     Dates: start: 20230918
  2. RINVOQ [Suspect]
     Active Substance: UPADACITINIB
     Indication: Rheumatoid arthritis
     Dosage: STRENGTH 15 MG
     Route: 048

REACTIONS (10)
  - Knee operation [Recovering/Resolving]
  - Pneumonia [Unknown]
  - Tooth infection [Recovering/Resolving]
  - Dyspnoea [Unknown]
  - Lung neoplasm malignant [Unknown]
  - Knee arthroplasty [Unknown]
  - Pain in extremity [Unknown]
  - Musculoskeletal stiffness [Unknown]
  - Trigger finger [Unknown]
  - Headache [Unknown]

NARRATIVE: CASE EVENT DATE: 20230101
